FAERS Safety Report 18222415 (Version 1)
Quarter: 2020Q3

REPORT INFORMATION
  Report Type: Spontaneous
  Country: US (occurrence: US)
  Receive Date: 20200831
  Receipt Date: 20200831
  Transmission Date: 20201103
  Serious: Yes (Disabling, Other)
  Sender: FDA-Public Use
  Company Number: None

PATIENT
  Age: 67 Year
  Sex: Male
  Weight: 105.75 kg

DRUGS (14)
  1. ALOE VERA [Concomitant]
     Active Substance: ALOE VERA LEAF
  2. ALPHA LIPOIC ACID [Concomitant]
     Active Substance: .ALPHA.-LIPOIC ACID
  3. TRAMADOL. [Suspect]
     Active Substance: TRAMADOL
     Indication: SPINAL CORD INJURY
     Dosage: ?          QUANTITY:150 TABLET(S);OTHER FREQUENCY:THREE TABLETS NOT;?
     Route: 048
     Dates: start: 20150131
  4. GREEN TEA EXTRACT [Concomitant]
  5. ASPIRIN. [Concomitant]
     Active Substance: ASPIRIN
  6. MAGNESIUM [Concomitant]
     Active Substance: MAGNESIUM
  7. MORPHINE [Suspect]
     Active Substance: MORPHINE
     Indication: SPINAL PAIN
     Dosage: ?          QUANTITY:60 TABLET(S);?
     Route: 048
     Dates: start: 20050131, end: 20200831
  8. COENZYME Q10 [Concomitant]
     Active Substance: DIETARY SUPPLEMENT\UBIDECARENONE
  9. ALEVE [Concomitant]
     Active Substance: NAPROXEN SODIUM
  10. CARISOPRODOL. [Suspect]
     Active Substance: CARISOPRODOL
  11. LUNESTA [Suspect]
     Active Substance: ESZOPICLONE
  12. NAPROXEN GENERIC LAVAZZA [Concomitant]
  13. METFORMIN [Concomitant]
     Active Substance: METFORMIN HYDROCHLORIDE
  14. TURMERIC [Concomitant]
     Active Substance: HERBALS\TURMERIC

REACTIONS (5)
  - Injury [None]
  - Condition aggravated [None]
  - Pain [None]
  - Drug dose titration not performed [None]
  - Therapy cessation [None]

NARRATIVE: CASE EVENT DATE: 20200831
